FAERS Safety Report 9181067 (Version 1)
Quarter: 2013Q1

REPORT INFORMATION
  Report Type: Spontaneous
  Country: US (occurrence: US)
  Receive Date: 20130322
  Receipt Date: 20130322
  Transmission Date: 20140127
  Serious: Yes (Hospitalization)
  Sender: FDA-Public Use
  Company Number: US-BAYER-2013-033925

PATIENT
  Age: 23 Year
  Sex: Female

DRUGS (7)
  1. YAZ [Suspect]
  2. YASMIN [Suspect]
  3. OCELLA [Suspect]
  4. TOPROL XL [Concomitant]
     Indication: TACHYCARDIA
  5. SPRINTEC [Concomitant]
  6. PREDNISONE [Concomitant]
     Indication: PAIN
  7. FLEXERIL [Concomitant]

REACTIONS (2)
  - Deep vein thrombosis [None]
  - Pulmonary embolism [Recovered/Resolved]
